FAERS Safety Report 8250083-6 (Version None)
Quarter: 2012Q1

REPORT INFORMATION
  Report Type: 
  Country: None (occurrence: None)
  Receive Date: 20120328
  Receipt Date: 20120313
  Transmission Date: 20120608
  Serious: Yes (Death)
  Sender: FDA-Public Use
  Company Number: FK201200855

PATIENT
  Age: 8 Year

DRUGS (2)
  1. MITOXANTRONE [Suspect]
     Dosage: 10 MG/M2, PER DAY, CUMULATIVE DOSE 50 MG/M2
  2. IDARUBICIN HCL [Suspect]
     Indication: ACUTE PROMYELOCYTIC LEUKAEMIA
     Dosage: 7 MG/M2, PER DAY, CUMULATIVE DOSE 90 MG/M2 ; 12 MG/M2, PER DAY, CUMULATIVE DOSE 90 MG/M2

REACTIONS (1)
  - CARDIAC FAILURE [None]
